FAERS Safety Report 5918597-9 (Version None)
Quarter: 2008Q4

REPORT INFORMATION
  Report Type: 
  Country: None (occurrence: None)
  Receive Date: 20081014
  Receipt Date: 20081014
  Transmission Date: 20090506
  Serious: Yes (Death, Hospitalization)
  Sender: FDA-Public Use
  Company Number: None

PATIENT
  Age: 61 Year
  Sex: Female

DRUGS (1)
  1. LOVENOX [Suspect]
     Indication: JOINT ARTHROPLASTY
     Dosage: UNKNOWN UNKNOWN UNK
     Route: 065

REACTIONS (1)
  - DISSEMINATED INTRAVASCULAR COAGULATION [None]
